FAERS Safety Report 20599703 (Version 1)
Quarter: 2022Q1

REPORT INFORMATION
  Report Type: Spontaneous
  Country: US (occurrence: US)
  Receive Date: 20220316
  Receipt Date: 20220316
  Transmission Date: 20220423
  Serious: Yes (Death, Other)
  Sender: FDA-Public Use
  Company Number: US-ALVOGEN-2022-ALVOGEN-118832

PATIENT
  Age: 51 Year
  Sex: Female

DRUGS (3)
  1. TRAZODONE [Suspect]
     Active Substance: TRAZODONE HYDROCHLORIDE
     Indication: Drug abuse
     Dosage: INGESTION PLUS UNKNOWN
  2. BUPROPION [Suspect]
     Active Substance: BUPROPION
     Indication: Drug abuse
     Dosage: INGESTION PLUS UNKNOWN
  3. ALCOHOL [Suspect]
     Active Substance: ALCOHOL
     Indication: Drug abuse
     Dosage: INGESTION PLUS UNKNOWN

REACTIONS (1)
  - Drug abuse [Fatal]
